FAERS Safety Report 8069007-X (Version None)
Quarter: 2012Q1

REPORT INFORMATION
  Report Type: 
  Country: None (occurrence: None)
  Receive Date: 20120118
  Receipt Date: 20120110
  Transmission Date: 20120608
  Serious: Yes (Hospitalization, Other)
  Sender: FDA-Public Use
  Company Number: 2011SP019410

PATIENT
  Age: 27 Year
  Sex: Female
  Weight: 113.3993 kg

DRUGS (4)
  1. SEROQUEL [Concomitant]
  2. AMBIEN [Concomitant]
  3. NUVARING [Suspect]
     Indication: CONTRACEPTION
     Dates: end: 20090421
  4. NUVARING [Suspect]
     Indication: CONTRACEPTION
     Dates: start: 20030401

REACTIONS (19)
  - MEDICAL DEVICE COMPLICATION [None]
  - PLEURAL EFFUSION [None]
  - HAEMATOCRIT DECREASED [None]
  - PLEURISY [None]
  - ABORTION THREATENED [None]
  - PRE-ECLAMPSIA [None]
  - PNEUMONIA [None]
  - POSTPARTUM DISORDER [None]
  - THROMBOSIS [None]
  - PARAESTHESIA [None]
  - HAEMOGLOBIN DECREASED [None]
  - PREGNANCY WITH IMPLANT CONTRACEPTIVE [None]
  - PYELONEPHRITIS [None]
  - PULMONARY EMBOLISM [None]
  - DIZZINESS [None]
  - FIBRIN D DIMER INCREASED [None]
  - ECTOPIC PREGNANCY [None]
  - ABORTION SPONTANEOUS [None]
  - MATERNAL EXPOSURE DURING PREGNANCY [None]
